FAERS Safety Report 15223571 (Version 1)
Quarter: 2018Q3

REPORT INFORMATION
  Report Type: Spontaneous
  Country: FR (occurrence: FR)
  Receive Date: 20180731
  Receipt Date: 20180731
  Transmission Date: 20181010
  Serious: Yes (Disabling)
  Sender: FDA-Public Use
  Company Number: FR-SA-2018SA203376

PATIENT
  Sex: Male

DRUGS (2)
  1. IMMUCYST [Suspect]
     Active Substance: BACILLUS CALMETTE-GUERIN SUBSTRAIN CONNAUGHT LIVE ANTIGEN
     Dosage: UNK
     Route: 043
     Dates: start: 20180704, end: 20180704
  2. IMMUCYST [Suspect]
     Active Substance: BACILLUS CALMETTE-GUERIN SUBSTRAIN CONNAUGHT LIVE ANTIGEN
     Indication: IMMUNISATION
     Dosage: UNK
     Route: 043
     Dates: start: 20180628, end: 20180628

REACTIONS (4)
  - Dysuria [Unknown]
  - Haematuria [Unknown]
  - Middle insomnia [Unknown]
  - Hyperthermia [Unknown]

NARRATIVE: CASE EVENT DATE: 20180628
